FAERS Safety Report 15712339 (Version 1)
Quarter: 2018Q4

REPORT INFORMATION
  Report Type: Spontaneous
  Country: US (occurrence: US)
  Receive Date: 20181212
  Receipt Date: 20181212
  Transmission Date: 20190205
  Serious: No
  Sender: FDA-Public Use
  Company Number: US-PFIZER INC-2018508996

PATIENT
  Age: 76 Year
  Sex: Female
  Weight: 59.86 kg

DRUGS (1)
  1. XELJANZ XR [Suspect]
     Active Substance: TOFACITINIB CITRATE
     Indication: RHEUMATOID ARTHRITIS
     Dosage: 1 TABLET, 1X/DAY
     Route: 048
     Dates: start: 201803

REACTIONS (4)
  - Herpes zoster [Unknown]
  - Ear pain [Unknown]
  - Sinus disorder [Unknown]
  - Blood pressure increased [Unknown]

NARRATIVE: CASE EVENT DATE: 2018
